FAERS Safety Report 17921890 (Version 1)
Quarter: 2020Q2

REPORT INFORMATION
  Report Type: Spontaneous
  Country: US (occurrence: US)
  Receive Date: 20200619
  Receipt Date: 20200619
  Transmission Date: 20200714
  Serious: Yes (Other)
  Sender: FDA-Public Use
  Company Number: None

PATIENT
  Sex: Female

DRUGS (1)
  1. ENOXAPARIN SODIUM 60MG/0.6ML SOLUTION [Suspect]
     Active Substance: ENOXAPARIN SODIUM

REACTIONS (2)
  - Maternal exposure during pregnancy [None]
  - Foetal exposure during pregnancy [None]
